FAERS Safety Report 8624166-2 (Version None)
Quarter: 2012Q3

REPORT INFORMATION
  Report Type: 
  Country: None (occurrence: None)
  Receive Date: 20120824
  Receipt Date: 20120824
  Transmission Date: 20120928
  Serious: Yes (Other)
  Sender: FDA-Public Use
  Company Number: None

PATIENT
  Sex: Female
  Weight: 58.514 kg

DRUGS (1)
  1. EPIPEN [Suspect]
     Indication: ARTHROPOD STING
     Dosage: 0.3ML AS NEEDED BY INJECTION

REACTIONS (1)
  - DEVICE MALFUNCTION [None]
